FAERS Safety Report 6156770-8 (Version None)
Quarter: 2009Q2

REPORT INFORMATION
  Report Type: 
  Country: None (occurrence: None)
  Receive Date: 20090416
  Receipt Date: 20090407
  Transmission Date: 20091009
  Serious: Yes (Hospitalization, Other)
  Sender: FDA-Public Use
  Company Number: PHHY2009BR13501

PATIENT
  Age: 22 Year
  Sex: Male

DRUGS (2)
  1. TEGRETOL [Suspect]
     Route: 048
  2. DIAZEPAM [Suspect]
     Route: 048

REACTIONS (3)
  - AGITATION [None]
  - SOMNOLENCE [None]
  - SUICIDE ATTEMPT [None]
